FAERS Safety Report 5177436-7 (Version None)
Quarter: 2006Q4

REPORT INFORMATION
  Report Type: 
  Country: None (occurrence: None)
  Receive Date: 20061206
  Receipt Date: 20061123
  Transmission Date: 20070319
  Serious: Yes (Death, Hospitalization)
  Sender: FDA-Public Use
  Company Number: 2006027724

PATIENT
  Age: 61 Year
  Sex: Female

DRUGS (20)
  1. GENOTROPIN [Suspect]
     Indication: HYPOPITUITARISM
     Dosage: 0.8 MG (DAILY)
     Dates: start: 20011009, end: 20050603
  2. HYDROCORTONE (HYDROCORTISONE) [Concomitant]
  3. EMGESAN                  (MAGNESIUM HYDROXIDE) [Concomitant]
  4. K CL TAB [Concomitant]
  5. LEVOTHYROXINE SODIUM [Concomitant]
  6. LIOTHYRONINE [Concomitant]
  7. BEHEPAN (CYANOCOBALAMIN) [Concomitant]
  8. TRAMADOL HCL [Concomitant]
  9. ALVEDON (PARACETAMOL) [Concomitant]
  10. PRIMODIUM (LOPERAMIDE OXIDE) [Concomitant]
  11. SANDOMIGRIN (PIZOTIFEN MALEATE) [Concomitant]
  12. FOLACIN            (CACIUM PHOSPHATE, FOLIC ACID) [Concomitant]
  13. PHYTONADIONE [Concomitant]
  14. DEXOFEN                       (DEXTROPROPOXYPHENE NAPSILATE) [Concomitant]
  15. METOPROLOL TARTRATE [Concomitant]
  16. PENTASA [Concomitant]
  17. DESMOPRESSIN [Concomitant]
  18. IMIGRAN       (SUMATRIPTAN SUCCINATE) [Concomitant]
  19. TRYPTIZOL          (AMITRIPTYLINE HYDROCHLORIDE) [Concomitant]
  20. WARFARIN SODIUM [Concomitant]

REACTIONS (19)
  - ABDOMINAL NEOPLASM [None]
  - ABDOMINAL PAIN [None]
  - BILIARY TRACT DISORDER [None]
  - BLOOD PRESSURE DECREASED [None]
  - C-REACTIVE PROTEIN INCREASED [None]
  - DYSPNOEA [None]
  - HYPERPARATHYROIDISM [None]
  - INTERNATIONAL NORMALISED RATIO INCREASED [None]
  - IRON DEFICIENCY ANAEMIA [None]
  - MULTI-ORGAN FAILURE [None]
  - MULTIPLE ENDOCRINE ADENOMATOSIS TYPE I [None]
  - NAUSEA [None]
  - PANCREATIC CYST [None]
  - PANCREATIC NEOPLASM [None]
  - PLEURAL EFFUSION [None]
  - PORTAL VEIN THROMBOSIS [None]
  - POST PROCEDURAL HAEMORRHAGE [None]
  - SEPSIS [None]
  - VOMITING [None]
